FAERS Safety Report 19000910 (Version 1)
Quarter: 2021Q1

REPORT INFORMATION
  Report Type: Report from Study
  Country: JP (occurrence: JP)
  Receive Date: 20210312
  Receipt Date: 20210312
  Transmission Date: 20210420
  Serious: Yes (Death, Hospitalization)
  Sender: FDA-Public Use
  Company Number: JP-AUROBINDO-AUR-APL-2019-051271

PATIENT
  Age: 65 Year
  Sex: Male
  Weight: 57 kg

DRUGS (13)
  1. BAKTAR [Concomitant]
     Active Substance: SULFAMETHOXAZOLE\TRIMETHOPRIM
     Indication: ANTIFUNGAL PROPHYLAXIS
  2. DIFLUCAN [Concomitant]
     Active Substance: FLUCONAZOLE
     Indication: ANTIBIOTIC PROPHYLAXIS
  3. LOXONIN [Concomitant]
     Active Substance: LOXOPROFEN SODIUM
     Dosage: 60 MILLIGRAM
     Route: 048
     Dates: start: 20090310, end: 20090310
  4. ZEVALIN [Suspect]
     Active Substance: IBRITUMOMAB TIUXETAN
     Indication: FOLLICLE CENTRE LYMPHOMA, FOLLICULAR GRADE I, II, III STAGE III
     Dosage: UNK
     Route: 042
     Dates: start: 20090303, end: 20090303
  5. ZEVALIN [Suspect]
     Active Substance: IBRITUMOMAB TIUXETAN
     Indication: B-CELL LYMPHOMA
     Dosage: 630 MEGABECQUEREL
     Route: 042
     Dates: start: 20090310, end: 20090310
  6. ZEVALIN [Suspect]
     Active Substance: IBRITUMOMAB TIUXETAN
     Indication: FOLLICLE CENTRE LYMPHOMA, FOLLICULAR GRADE I, II, III STAGE III
     Dosage: 130 MEGABECQUEREL
     Route: 042
     Dates: start: 20090303, end: 20090303
  7. RITUXAN [Suspect]
     Active Substance: RITUXIMAB
     Dosage: 250 MG/M2, SINGLE
     Route: 042
     Dates: start: 20090310, end: 20090310
  8. LOXONIN [Concomitant]
     Active Substance: LOXOPROFEN SODIUM
     Indication: PREMEDICATION
     Dosage: 60 MILLIGRAM
     Route: 048
     Dates: start: 20090303, end: 20090303
  9. DIFLUCAN [Concomitant]
     Active Substance: FLUCONAZOLE
     Indication: ANTIBIOTIC PROPHYLAXIS
     Dosage: 100 MILLIGRAM, ONCE A DAY
     Route: 048
     Dates: start: 20090226, end: 20090401
  10. POLARAMINE [Concomitant]
     Active Substance: DEXCHLORPHENIRAMINE MALEATE
     Indication: PREMEDICATION
     Dosage: 2 MILLIGRAM
     Route: 048
     Dates: start: 20090303, end: 20090303
  11. RITUXAN [Suspect]
     Active Substance: RITUXIMAB
     Indication: FOLLICLE CENTRE LYMPHOMA, FOLLICULAR GRADE I, II, III STAGE III
     Dosage: 250 MG/M2, SINGLE
     Route: 042
     Dates: start: 20090303, end: 20090303
  12. BAKTAR [Concomitant]
     Active Substance: SULFAMETHOXAZOLE\TRIMETHOPRIM
     Indication: ANTIFUNGAL PROPHYLAXIS
     Dosage: 80 MILLIGRAM, ONCE A DAY
     Route: 048
     Dates: start: 20090226, end: 20090401
  13. POLARAMINE [Concomitant]
     Active Substance: DEXCHLORPHENIRAMINE MALEATE
     Dosage: 2 MILLIGRAM
     Route: 048
     Dates: start: 20090310, end: 20090310

REACTIONS (5)
  - Pharyngitis [Recovered/Resolved]
  - Febrile neutropenia [Fatal]
  - Septic shock [Fatal]
  - Myelosuppression [Fatal]
  - Sinusitis [Recovered/Resolved]

NARRATIVE: CASE EVENT DATE: 20090305
